FAERS Safety Report 24380255 (Version 1)
Quarter: 2024Q3

REPORT INFORMATION
  Report Type: Spontaneous
  Country: NL (occurrence: NL)
  Receive Date: 20240930
  Receipt Date: 20240930
  Transmission Date: 20241017
  Serious: Yes (Other)
  Sender: TEVA
  Company Number: None

PATIENT
  Age: 63 Year
  Sex: Male
  Weight: 70 kg

DRUGS (2)
  1. CIPROFLOXACIN [Suspect]
     Active Substance: CIPROFLOXACIN
     Indication: Cystitis
     Dosage: 1; BRAND NAME NOT SPECIFIED
     Route: 065
     Dates: start: 20240816
  2. SPIRONOLACTONE [Concomitant]
     Active Substance: SPIRONOLACTONE
     Indication: Product used for unknown indication
     Dosage: BRAND NAME NOT SPECIFIED

REACTIONS (9)
  - Atrial fibrillation [Recovering/Resolving]
  - Dizziness [Unknown]
  - Diarrhoea [Unknown]
  - Malaise [Recovering/Resolving]
  - Fluid retention [Unknown]
  - Dyspnoea [Unknown]
  - Tachycardia [Recovering/Resolving]
  - Ejection fraction decreased [Recovering/Resolving]
  - Poor quality sleep [Unknown]
